FAERS Safety Report 7137783-6 (Version None)
Quarter: 2010Q4

REPORT INFORMATION
  Report Type: 
  Country: None (occurrence: None)
  Receive Date: 20101103
  Receipt Date: 20100622
  Transmission Date: 20110411
  Serious: Yes (Other)
  Sender: FDA-Public Use
  Company Number: 2010S1000252

PATIENT
  Sex: Female

DRUGS (1)
  1. CUBICIN [Suspect]

REACTIONS (1)
  - RENAL FAILURE [None]
